FAERS Safety Report 7830139-X (Version None)
Quarter: 2011Q4

REPORT INFORMATION
  Report Type: 
  Country: None (occurrence: None)
  Receive Date: 20111019
  Receipt Date: 20111007
  Transmission Date: 20120403
  Serious: Yes (Hospitalization)
  Sender: FDA-Public Use
  Company Number: THQ2011A06307

PATIENT
  Age: 58 Year
  Sex: Male

DRUGS (16)
  1. FUNGUARD (MICAFUNGIN SODIUM) [Concomitant]
  2. LANSOPRAZOLE [Concomitant]
  3. B FLUID (ALL OTHER THERAPEUTIC PRODUCTS) [Concomitant]
  4. AZUNOL GARGLE LIQUID (SODIUM GUALENATE) [Concomitant]
  5. NEO-MINOPHAGEN C (GLYCYRRHIZIC ACID, AMMONIUM SALT) [Concomitant]
  6. COTRIM [Concomitant]
  7. SOLDEM 1 (GLUCOSE, SODIUM LACTATE, SODIUM CHLORIDE) [Concomitant]
  8. ANTEBATE (BETAMETHASONE BUTYRATE PROPIONATE) [Concomitant]
  9. LANSOPRAZOLE [Suspect]
  10. CLINDAMYCIN PHOSPHATE [Concomitant]
  11. ALESION (EPINASTINE HYDROCHLORIDE) [Concomitant]
  12. MAXIPIME [Concomitant]
  13. CHLOR-TRIMETON [Concomitant]
  14. KW-0761 (ALL OTHER THERAPEUTIC PRODUCTS) [Suspect]
     Indication: LYMPHOMA
     Dosage: 1 MG/KG (1 MG/KG,1 IN 1 WK)
     Dates: start: 20110707
  15. NIZORAL [Concomitant]
  16. ZOVIRAX [Concomitant]

REACTIONS (14)
  - BILE DUCT STONE [None]
  - HYPOPHAGIA [None]
  - LUNG INFILTRATION [None]
  - CHOLELITHIASIS [None]
  - HERPES OESOPHAGITIS [None]
  - TOXIC SKIN ERUPTION [None]
  - BILIARY COLIC [None]
  - ACNE [None]
  - SKIN CANDIDA [None]
  - SENSORY DISTURBANCE [None]
  - LIVER INJURY [None]
  - ORAL CANDIDIASIS [None]
  - RENAL IMPAIRMENT [None]
  - BACTERIAL INFECTION [None]
